FAERS Safety Report 8200188-0 (Version None)
Quarter: 2012Q1

REPORT INFORMATION
  Report Type: 
  Country: None (occurrence: None)
  Receive Date: 20120312
  Receipt Date: 20120306
  Transmission Date: 20120608
  Serious: Yes (Other)
  Sender: FDA-Public Use
  Company Number: US-PFIZER INC-2012061264

PATIENT
  Sex: Male

DRUGS (3)
  1. ANDROGEL [Suspect]
     Indication: BLOOD TESTOSTERONE DECREASED
     Dosage: 1.62 %, UNK
     Dates: start: 20111201, end: 20120101
  2. HUMIRA [Suspect]
     Indication: PSORIASIS
     Dosage: 40 MG/0.8 ML, UNK
     Dates: start: 20110501, end: 20120101
  3. LIPITOR [Suspect]
     Indication: BLOOD CHOLESTEROL INCREASED
     Dosage: UNK
     Dates: start: 20111201, end: 20120101

REACTIONS (7)
  - PAIN IN EXTREMITY [None]
  - ARTHRALGIA [None]
  - LUPUS-LIKE SYNDROME [None]
  - BLOOD TESTOSTERONE DECREASED [None]
  - BLOOD CHOLESTEROL INCREASED [None]
  - SYSTEMIC LUPUS ERYTHEMATOSUS [None]
  - PSORIATIC ARTHROPATHY [None]
